FAERS Safety Report 8154838-8 (Version None)
Quarter: 2012Q1

REPORT INFORMATION
  Report Type: 
  Country: None (occurrence: None)
  Receive Date: 20120221
  Receipt Date: 20120214
  Transmission Date: 20120608
  Serious: Yes (Death, Other)
  Sender: FDA-Public Use
  Company Number: PHHY2012US013750

PATIENT
  Age: 16 Year
  Sex: Male

DRUGS (2)
  1. CYCLOSPORINE [Suspect]
     Indication: STEM CELL TRANSPLANT
  2. STEROIDS NOS [Suspect]

REACTIONS (3)
  - ACUTE GRAFT VERSUS HOST DISEASE [None]
  - PNEUMATOSIS INTESTINALIS [None]
  - CHRONIC GRAFT VERSUS HOST DISEASE [None]
